FAERS Safety Report 22075026 (Version 1)
Quarter: 2023Q1

REPORT INFORMATION
  Report Type: Spontaneous
  Country: JP (occurrence: None)
  Receive Date: 20230308
  Receipt Date: 20230308
  Transmission Date: 20230418
  Serious: Yes (Other)
  Sender: FDA-Public Use
  Company Number: 2023A054552

PATIENT
  Age: 59 Year
  Sex: Female

DRUGS (7)
  1. GEFITINIB [Suspect]
     Active Substance: GEFITINIB
     Indication: Lung adenocarcinoma
     Route: 048
  2. OSIMERTINIB [Suspect]
     Active Substance: OSIMERTINIB
     Indication: Lung adenocarcinoma
     Route: 048
  3. OSIMERTINIB [Suspect]
     Active Substance: OSIMERTINIB
     Indication: Metastases to meninges
     Route: 048
  4. OSIMERTINIB [Suspect]
     Active Substance: OSIMERTINIB
     Indication: Lung adenocarcinoma
     Dosage: REINTRODUCED
     Route: 048
  5. OSIMERTINIB [Suspect]
     Active Substance: OSIMERTINIB
     Indication: Metastases to meninges
     Dosage: REINTRODUCED
     Route: 048
  6. AFATINIB [Concomitant]
     Active Substance: AFATINIB
  7. BEVACIZUMAB [Concomitant]
     Active Substance: BEVACIZUMAB

REACTIONS (9)
  - Drug resistance [Unknown]
  - Lymphadenopathy [Unknown]
  - Adenocarcinoma [Unknown]
  - Malignant neoplasm progression [Unknown]
  - Metastases to meninges [Not Recovered/Not Resolved]
  - Pleural effusion [Unknown]
  - Malignant transformation [Unknown]
  - Performance status decreased [Unknown]
  - Treatment failure [Unknown]
